FAERS Safety Report 23203598 (Version 1)
Quarter: 2023Q4

REPORT INFORMATION
  Report Type: Other
  Country: BG (occurrence: None)
  Receive Date: 20231120
  Receipt Date: 20231120
  Transmission Date: 20240110
  Serious: Yes (Hospitalization)
  Sender: FDA-Public Use
  Company Number: BG-ROCHE-3457358

PATIENT
  Age: 40 Year
  Sex: Male

DRUGS (10)
  1. RITUXIMAB [Suspect]
     Active Substance: RITUXIMAB
     Indication: Polymyositis
     Route: 042
     Dates: start: 20200428
  2. RITUXIMAB [Suspect]
     Active Substance: RITUXIMAB
     Dosage: RECEIVED SUBSEQUENT DOSES IN SEP/2021, APR/2022 AND OCT/2022
     Route: 042
  3. MYCOPHENOLATE MOFETIL [Concomitant]
     Active Substance: MYCOPHENOLATE MOFETIL
     Indication: Polymyositis
     Route: 048
     Dates: start: 201907
  4. PREDNISOLONE [Concomitant]
     Active Substance: PREDNISOLONE
  5. METHYLPREDNISOLONE [Concomitant]
     Active Substance: METHYLPREDNISOLONE
  6. METHOTREXATE [Concomitant]
     Active Substance: METHOTREXATE
     Dates: start: 201705
  7. METHOTREXATE [Concomitant]
     Active Substance: METHOTREXATE
     Dates: end: 20190108
  8. METHOTREXATE [Concomitant]
     Active Substance: METHOTREXATE
     Dates: end: 201907
  9. CYCLOPHOSPHAMIDE [Concomitant]
     Active Substance: CYCLOPHOSPHAMIDE
  10. ZANTAC [Concomitant]
     Active Substance: RANITIDINE HYDROCHLORIDE
     Dates: start: 20190108

REACTIONS (2)
  - Infection [Unknown]
  - COVID-19 [Unknown]

NARRATIVE: CASE EVENT DATE: 20201101
